FAERS Safety Report 4283368-9 (Version None)
Quarter: 2004Q1

REPORT INFORMATION
  Report Type: 
  Country: None (occurrence: None)
  Receive Date: 20040202
  Receipt Date: 20040123
  Transmission Date: 20041129
  Serious: Yes (Disabling)
  Sender: FDA-Public Use
  Company Number: PHRM2004FR00642

PATIENT
  Age: 60 Year
  Sex: Female

DRUGS (1)
  1. TEGRETOL [Suspect]
     Route: 048
     Dates: end: 20031101

REACTIONS (9)
  - ABASIA [None]
  - BEDRIDDEN [None]
  - CEREBRAL DISORDER [None]
  - COMMUNICATION DISORDER [None]
  - CREUTZFELDT-JAKOB DISEASE [None]
  - DEMENTIA ALZHEIMER'S TYPE [None]
  - DERMATITIS ALLERGIC [None]
  - MYOCLONUS [None]
  - SPEECH DISORDER [None]
